FAERS Safety Report 13763313 (Version 1)
Quarter: 2017Q3

REPORT INFORMATION
  Report Type: Other
  Country: None (occurrence: US)
  Receive Date: 20170718
  Receipt Date: 20170718
  Transmission Date: 20171127
  Serious: Yes (Life-Threatening, Other)
  Sender: FDA-Public Use
  Company Number: US-ASCEND THERAPEUTICS-2023441

PATIENT
  Age: 32 Year
  Sex: Female
  Weight: 74 kg

DRUGS (21)
  1. ESTRADIOL. [Suspect]
     Active Substance: ESTRADIOL
     Route: 048
  2. BUPROPION. [Concomitant]
     Active Substance: BUPROPION
     Route: 065
  3. GLYCOPYRRONIUM BROMIDE [Concomitant]
     Active Substance: GLYCOPYRRONIUM
     Route: 042
  4. ESTROGEL [Suspect]
     Active Substance: ESTRADIOL
     Indication: TRANSGENDER HORMONAL THERAPY
     Route: 062
  5. SUXAMETHONIUM [Suspect]
     Active Substance: SUCCINYLCHOLINE
     Route: 042
  6. SUXAMETHONIUM [Suspect]
     Active Substance: SUCCINYLCHOLINE
     Route: 042
  7. PROPOFOL. [Concomitant]
     Active Substance: PROPOFOL
     Route: 065
  8. AMFETAMINE [Concomitant]
     Active Substance: AMPHETAMINE
     Route: 065
  9. GLYCOPYRRONIUM BROMIDE [Concomitant]
     Active Substance: GLYCOPYRRONIUM
     Route: 042
  10. ROCURONIUM [Concomitant]
     Active Substance: ROCURONIUM BROMIDE
     Route: 042
  11. METHOHEXITAL [Concomitant]
     Active Substance: METHOHEXITAL
     Route: 042
  12. MIDAZOLAM [Concomitant]
     Active Substance: MIDAZOLAM HYDROCHLORIDE
     Route: 042
  13. SUXAMETHONIUM [Suspect]
     Active Substance: SUCCINYLCHOLINE
     Route: 042
  14. ROCURONIUM [Concomitant]
     Active Substance: ROCURONIUM BROMIDE
     Route: 042
  15. METHOHEXITAL [Concomitant]
     Active Substance: METHOHEXITAL
     Route: 042
  16. METHOHEXITAL [Concomitant]
     Active Substance: METHOHEXITAL
     Route: 042
  17. MIDAZOLAM [Concomitant]
     Active Substance: MIDAZOLAM HYDROCHLORIDE
     Route: 042
  18. MIRTAZAPINE. [Concomitant]
     Active Substance: MIRTAZAPINE
     Route: 065
  19. TRAZODONE [Concomitant]
     Active Substance: TRAZODONE HYDROCHLORIDE
     Route: 065
  20. SUXAMETHONIUM [Suspect]
     Active Substance: SUCCINYLCHOLINE
     Route: 042
  21. SPIRONOLACTONE. [Concomitant]
     Active Substance: SPIRONOLACTONE
     Route: 065

REACTIONS (4)
  - Hypotonia [Recovered/Resolved]
  - Drug interaction [Recovered/Resolved]
  - Apnoea [Recovered/Resolved]
  - Pseudocholinesterase deficiency [Unknown]
